FAERS Safety Report 10360882 (Version 2)
Quarter: 2014Q3

REPORT INFORMATION
  Report Type: Spontaneous
  Country: BR (occurrence: BR)
  Receive Date: 20140804
  Receipt Date: 20140819
  Transmission Date: 20150326
  Serious: Yes (Other)
  Sender: FDA-Public Use
  Company Number: PHHY2014BR095283

PATIENT
  Age: 55 Year
  Sex: Male

DRUGS (8)
  1. DIGOXIN. [Concomitant]
     Active Substance: DIGOXIN
     Dosage: 1 TABLET (0.25 MG) DAILY
     Route: 048
  2. HYDROCHLOROTHIAZIDE. [Concomitant]
     Active Substance: HYDROCHLOROTHIAZIDE
     Dosage: 1 TABLET (25 MG) DAILY
     Route: 048
     Dates: start: 20140812
  3. LOSARTAN [Concomitant]
     Active Substance: LOSARTAN
     Dosage: 2 TABLETS (50 MG) DAILY
     Route: 048
     Dates: start: 20140812
  4. DIOVAN TRIPLE [Suspect]
     Active Substance: AMLODIPINE BESYLATE\HYDROCHLOROTHIAZIDE\VALSARTAN
     Indication: CARDIOMEGALY
     Dosage: 1 DF PER DAY
     Route: 048
     Dates: end: 20140812
  5. AMLODIPINE [Concomitant]
     Active Substance: AMLODIPINE BESYLATE
     Dosage: 1 TABLET (5 MG) DAILY
     Route: 048
  6. AMIODARONE [Concomitant]
     Active Substance: AMIODARONE
     Dosage: 1 TABLET (200 MG) DAILY
     Route: 048
  7. DIOVAN TRIPLE [Suspect]
     Active Substance: AMLODIPINE BESYLATE\HYDROCHLOROTHIAZIDE\VALSARTAN
     Indication: HYPERTENSION
  8. CONCOR [Concomitant]
     Active Substance: BISOPROLOL FUMARATE
     Dosage: 1 TABLET (5 MG) DAILY
     Route: 048

REACTIONS (9)
  - Fatigue [Recovered/Resolved]
  - Abasia [Recovered/Resolved]
  - Decreased appetite [Recovered/Resolved]
  - Hypertension [Not Recovered/Not Resolved]
  - Headache [Recovered/Resolved]
  - Anuria [Recovered/Resolved]
  - Slow response to stimuli [Recovered/Resolved]
  - Pyrexia [Recovered/Resolved]
  - Asthenia [Recovered/Resolved]

NARRATIVE: CASE EVENT DATE: 20140808
